FAERS Safety Report 9843575 (Version 1)
Quarter: 2013Q4

REPORT INFORMATION
  Report Type: Spontaneous
  Country: US (occurrence: None)
  Receive Date: 20131219
  Receipt Date: 20131219
  Transmission Date: 20140711
  Serious: Yes (Other)
  Sender: FDA-Public Use
  Company Number: 163-20785-13032243

PATIENT
  Age: 85 Year
  Sex: Male
  Weight: 83.92 kg

DRUGS (5)
  1. THALOMID (THALIDOMIDE) (50 MILLIGRAM, CAPSULES) [Suspect]
     Indication: MYELODYSPLASTIC SYNDROME
     Route: 048
     Dates: start: 20130117, end: 20130301
  2. THALOMID (THALIDOMIDE) (50 MILLIGRAM, CAPSULES) [Suspect]
     Indication: MYELOFIBROSIS
     Route: 048
     Dates: start: 20130117, end: 20130301
  3. LIPITOR(ATORVASTATIN) (UNKNOWN) [Concomitant]
  4. LOPRESSOR(METOPROLOL TARTRATE)(UNKNOWN) [Concomitant]
  5. PREDNISONE(PREDNISONE) (UNKNOWN) [Concomitant]

REACTIONS (3)
  - Platelet count decreased [None]
  - Haemoglobin decreased [None]
  - Drug ineffective [None]
